FAERS Safety Report 7112752-0 (Version None)
Quarter: 2010Q4

REPORT INFORMATION
  Report Type: 
  Country: None (occurrence: None)
  Receive Date: 20101119
  Receipt Date: 20101112
  Transmission Date: 20110411
  Serious: Yes (Hospitalization)
  Sender: FDA-Public Use
  Company Number: US-BRISTOL-MYERS SQUIBB COMPANY-15383433

PATIENT
  Sex: Female

DRUGS (3)
  1. ONGLYZA [Suspect]
     Indication: DIABETES MELLITUS
  2. GLUCOPHAGE [Concomitant]
  3. HUMULIN 70/30 [Concomitant]

REACTIONS (1)
  - PANCREATITIS [None]
